FAERS Safety Report 6220029-0 (Version None)
Quarter: 2009Q2

REPORT INFORMATION
  Report Type: 
  Country: None (occurrence: None)
  Receive Date: 20090609
  Receipt Date: 20090602
  Transmission Date: 20091009
  Serious: Yes (Hospitalization)
  Sender: FDA-Public Use
  Company Number: US-SANOFI-SYNTHELABO-F01200900353

PATIENT
  Sex: Male

DRUGS (16)
  1. ASPIRIN [Concomitant]
  2. METOPROLOL SUCCINATE [Concomitant]
     Route: 065
  3. GLIPIZIDE [Concomitant]
     Dosage: UNK
     Route: 065
  4. BACLOFEN [Concomitant]
     Dosage: UNK
     Route: 065
  5. NOVOLOG [Concomitant]
     Dosage: UNK
     Route: 065
  6. LANTUS [Concomitant]
     Dosage: UNK
     Route: 065
  7. ZESTRIL [Concomitant]
     Dosage: UNK
     Route: 065
  8. LEVOTHYROXINE [Concomitant]
     Dosage: UNK
  9. DIGOXIN [Concomitant]
     Dosage: UNK
     Route: 065
  10. LOPRESSOR [Concomitant]
     Dosage: UNK
     Route: 065
  11. ISOSORBIDE MONONITRATE [Concomitant]
     Dosage: UNK
     Route: 065
  12. LASIX [Concomitant]
     Dosage: UNK
     Route: 065
  13. SIMVASTATIN [Concomitant]
     Dosage: UNK
     Route: 065
  14. ESOMEPRAZOLE MAGNESIUM [Concomitant]
     Dosage: UNK
     Route: 065
  15. OXALIPLATIN [Suspect]
     Indication: COLON CANCER
     Route: 041
     Dates: start: 20090323, end: 20090323
  16. XELODA [Suspect]
     Route: 048
     Dates: start: 20090323, end: 20090323

REACTIONS (3)
  - ACUTE MYOCARDIAL INFARCTION [None]
  - MYOCARDIAL INFARCTION [None]
  - PERCUTANEOUS CORONARY INTERVENTION [None]
